FAERS Safety Report 7502162-6 (Version None)
Quarter: 2011Q2

REPORT INFORMATION
  Report Type: 
  Country: None (occurrence: None)
  Receive Date: 20110523
  Receipt Date: 20110523
  Transmission Date: 20111010
  Serious: Yes (Hospitalization)
  Sender: FDA-Public Use
  Company Number: None

PATIENT
  Age: 55 Year
  Sex: Male
  Weight: 122.7 kg

DRUGS (1)
  1. CLINDAMYCIN [Suspect]
     Indication: INFECTION PROPHYLAXIS
     Dosage: 600 MG ONCE IV
     Route: 042
     Dates: start: 20110225, end: 20110225

REACTIONS (2)
  - RASH [None]
  - STEVENS-JOHNSON SYNDROME [None]
